FAERS Safety Report 12074880 (Version 1)
Quarter: 2016Q1

REPORT INFORMATION
  Report Type: Spontaneous
  Country: US (occurrence: US)
  Receive Date: 20160212
  Receipt Date: 20160212
  Transmission Date: 20160526
  Serious: Yes (Other)
  Sender: FDA-Public Use
  Company Number: US-ASTRAZENECA-2016SE12824

PATIENT
  Age: 24 Year
  Sex: Male
  Weight: 64.9 kg

DRUGS (5)
  1. DIFLUCAN [Suspect]
     Active Substance: FLUCONAZOLE
     Indication: FUNGAL INFECTION
     Route: 065
     Dates: start: 201506, end: 201506
  2. NEXIUM [Suspect]
     Active Substance: ESOMEPRAZOLE MAGNESIUM
     Indication: OESOPHAGITIS
     Dosage: 2 OR 3 TIMES A DAY
     Route: 048
     Dates: start: 201505
  3. PRILOSEC [Suspect]
     Active Substance: OMEPRAZOLE MAGNESIUM
     Indication: OESOPHAGITIS
     Dosage: 40MG, MORE THAN ONCE A DAY FOR 2 WEEKS
     Route: 048
     Dates: start: 201505, end: 201505
  4. FLAGYL [Suspect]
     Active Substance: METRONIDAZOLE\METRONIDAZOLE HYDROCHLORIDE
     Indication: SMALL INTESTINAL BACTERIAL OVERGROWTH
     Route: 048
     Dates: start: 20150901, end: 20150905
  5. XIFAXAN [Suspect]
     Active Substance: RIFAXIMIN
     Indication: SMALL INTESTINAL BACTERIAL OVERGROWTH
     Route: 048
     Dates: start: 201506, end: 201506

REACTIONS (11)
  - Visual impairment [Recovered/Resolved]
  - Balance disorder [Recovered/Resolved]
  - Dyspepsia [Recovering/Resolving]
  - Oral fungal infection [Recovered/Resolved]
  - Seizure [Unknown]
  - Disturbance in attention [Unknown]
  - Product use issue [Unknown]
  - Gastrointestinal bacterial infection [Recovering/Resolving]
  - Tremor [Recovered/Resolved]
  - Vertigo [Unknown]
  - Intentional product use issue [Unknown]

NARRATIVE: CASE EVENT DATE: 201505
